FAERS Safety Report 25387839 (Version 1)
Quarter: 2025Q2

REPORT INFORMATION
  Report Type: Spontaneous
  Country: US (occurrence: US)
  Receive Date: 20250603
  Receipt Date: 20250603
  Transmission Date: 20250716
  Serious: No
  Sender: SANOFI AVENTIS
  Company Number: US-OPELLA-2025OHG016251

PATIENT
  Age: 61 Year
  Sex: Female

DRUGS (4)
  1. DUPIXENT [Suspect]
     Active Substance: DUPILUMAB
     Indication: Disseminated superficial actinic porokeratosis
     Dosage: 300 MG, QOW
  2. ALLEGRA-D [Suspect]
     Active Substance: FEXOFENADINE HYDROCHLORIDE\PSEUDOEPHEDRINE HYDROCHLORIDE
     Indication: Hypersensitivity
     Route: 065
  3. MONTELUKAST [Suspect]
     Active Substance: MONTELUKAST
     Indication: Hypersensitivity
     Route: 065
  4. FLONASE [Suspect]
     Active Substance: FLUTICASONE PROPIONATE
     Indication: Hypersensitivity
     Route: 065

REACTIONS (2)
  - Feeling abnormal [Unknown]
  - Fatigue [Unknown]
